FAERS Safety Report 9756559 (Version 1)
Quarter: 2013Q4

REPORT INFORMATION
  Report Type: Spontaneous
  Country: US (occurrence: US)
  Receive Date: 20131213
  Receipt Date: 20131213
  Transmission Date: 20140711
  Serious: No
  Sender: FDA-Public Use
  Company Number: US-GLAXOSMITHKLINE-A1046049A

PATIENT
  Sex: 0

DRUGS (2)
  1. NICODERM CQ 21MG [Suspect]
     Indication: EX-TOBACCO USER
  2. NICODERM CQ CLEAR 7MG [Suspect]
     Indication: EX-TOBACCO USER

REACTIONS (2)
  - Drug administration error [Unknown]
  - Drug ineffective [Unknown]
